FAERS Safety Report 12692992 (Version 1)
Quarter: 2016Q3

REPORT INFORMATION
  Report Type: Spontaneous
  Country: US (occurrence: None)
  Receive Date: 20160826
  Receipt Date: 20160826
  Transmission Date: 20161109
  Serious: Yes (Hospitalization)
  Sender: FDA-Public Use
  Company Number: None

PATIENT
  Age: 71 Year
  Sex: Female
  Weight: 70.76 kg

DRUGS (15)
  1. LOSARTAN POTASSIUM. [Concomitant]
     Active Substance: LOSARTAN POTASSIUM
  2. SYNTHROID [Concomitant]
     Active Substance: LEVOTHYROXINE SODIUM
  3. SIMETHICONE (DIMETHICONE) [Concomitant]
     Active Substance: DIMETHICONE
  4. BYSTOLIC [Concomitant]
     Active Substance: NEBIVOLOL HYDROCHLORIDE
  5. AMILORIDE [Concomitant]
     Active Substance: AMILORIDE
  6. CLARITIN [Concomitant]
     Active Substance: LORATADINE
  7. EOVIST [Suspect]
     Active Substance: GADOXETATE DISODIUM
     Indication: CYST
     Dosage: IN THE MORNING INTO A VEIN
     Route: 042
     Dates: start: 20160815, end: 20160815
  8. MORPHINE IR [Concomitant]
     Active Substance: MORPHINE
  9. VITAMIN D3 [Concomitant]
     Active Substance: CHOLECALCIFEROL
  10. FUROSEMIDE. [Concomitant]
     Active Substance: FUROSEMIDE
  11. POLYETHYLENE GLYCOL 3350. [Concomitant]
     Active Substance: POLYETHYLENE GLYCOL 3350
  12. GENERIC LEXAPRO [Concomitant]
     Active Substance: ESCITALOPRAM OXALATE
  13. DIAZEPAM. [Concomitant]
     Active Substance: DIAZEPAM
  14. PROBIOTIC [Concomitant]
     Active Substance: PROBIOTICS NOS
  15. ACETOMINOPHEN [Concomitant]

REACTIONS (5)
  - Myocardial infarction [None]
  - Hypoaesthesia [None]
  - Contrast media reaction [None]
  - Chest discomfort [None]
  - Dyspnoea [None]

NARRATIVE: CASE EVENT DATE: 20160815
